FAERS Safety Report 15982843 (Version 1)
Quarter: 2019Q1

REPORT INFORMATION
  Report Type: Spontaneous
  Country: US (occurrence: US)
  Receive Date: 20190219
  Receipt Date: 20190219
  Transmission Date: 20190418
  Serious: Yes (Hospitalization)
  Sender: FDA-Public Use
  Company Number: US-SHIRE-US201905100

PATIENT
  Age: 73 Year
  Sex: Female

DRUGS (4)
  1. FEIBA NF [Suspect]
     Active Substance: ANTI-INHIBITOR COAGULANT COMPLEX
     Indication: OFF LABEL USE
  2. FEIBA NF [Suspect]
     Active Substance: ANTI-INHIBITOR COAGULANT COMPLEX
     Indication: FACTOR V DEFICIENCY
     Route: 065
  3. FRESH FROZEN PLASMA [Concomitant]
     Active Substance: HUMAN PLASMA
     Indication: FACTOR V DEFICIENCY
  4. VITAMIN K [Concomitant]
     Active Substance: PHYTONADIONE
     Indication: FACTOR V DEFICIENCY

REACTIONS (2)
  - Factor V inhibition [Unknown]
  - Off label use [Unknown]
